FAERS Safety Report 19920478 (Version 6)
Quarter: 2021Q4

REPORT INFORMATION
  Report Type: Spontaneous
  Country: US (occurrence: US)
  Receive Date: 20211005
  Receipt Date: 20211206
  Transmission Date: 20220303
  Serious: Yes (Hospitalization, Other)
  Sender: FDA-Public Use
  Company Number: US-OTSUKA-2021_034124

PATIENT
  Sex: Female

DRUGS (7)
  1. ABILIFY [Suspect]
     Active Substance: ARIPIPRAZOLE
     Indication: Mania
     Dosage: 5 MG
     Route: 065
     Dates: start: 2008
  2. ABILIFY [Suspect]
     Active Substance: ARIPIPRAZOLE
     Indication: Psychotic disorder
     Dosage: 5 MG
     Route: 065
     Dates: start: 2015
  3. COGENTIN [Suspect]
     Active Substance: BENZTROPINE MESYLATE
     Indication: Product used for unknown indication
     Dosage: UNK
     Route: 065
     Dates: start: 2008
  4. LAMICTAL [Concomitant]
     Active Substance: LAMOTRIGINE
     Indication: Mania
     Dosage: UNK
     Route: 065
  5. LAMICTAL [Concomitant]
     Active Substance: LAMOTRIGINE
     Indication: Psychotic disorder
  6. LEXAPRO [Concomitant]
     Active Substance: ESCITALOPRAM OXALATE
     Indication: Product used for unknown indication
     Dosage: 10MG
     Route: 065
  7. METOPROLOL [Concomitant]
     Active Substance: METOPROLOL
     Indication: Blood pressure measurement
     Dosage: UNK
     Route: 065

REACTIONS (42)
  - Alcoholism [Unknown]
  - Behavioural addiction [Unknown]
  - Drug dependence [Unknown]
  - Near death experience [Unknown]
  - Multiple fractures [Unknown]
  - Mental impairment [Not Recovered/Not Resolved]
  - Obsessive-compulsive disorder [Unknown]
  - Dementia [Not Recovered/Not Resolved]
  - Intentional self-injury [Unknown]
  - Bipolar disorder [Not Recovered/Not Resolved]
  - Pancreatitis [Unknown]
  - Weight increased [Unknown]
  - Drug abuse [Unknown]
  - Injury [Not Recovered/Not Resolved]
  - Scab [Not Recovered/Not Resolved]
  - Lymphadenopathy [Unknown]
  - Impetigo [Unknown]
  - Tobacco user [Unknown]
  - Post-traumatic stress disorder [Not Recovered/Not Resolved]
  - Scar [Unknown]
  - Adverse event [Unknown]
  - Thinking abnormal [Not Recovered/Not Resolved]
  - Mania [Unknown]
  - Fear [Unknown]
  - Gastritis [Unknown]
  - Confusional state [Not Recovered/Not Resolved]
  - Libido decreased [Not Recovered/Not Resolved]
  - Nervousness [Unknown]
  - Anger [Unknown]
  - Dyspnoea [Unknown]
  - Malaise [Unknown]
  - Memory impairment [Not Recovered/Not Resolved]
  - Impulse-control disorder [Not Recovered/Not Resolved]
  - Alopecia [Not Recovered/Not Resolved]
  - Anxiety [Not Recovered/Not Resolved]
  - Gambling disorder [Not Recovered/Not Resolved]
  - Dizziness [Not Recovered/Not Resolved]
  - Psychotic disorder [Unknown]
  - Inability to afford medication [Unknown]
  - Economic problem [Unknown]
  - Product use in unapproved indication [Unknown]
  - Homeless [Unknown]

NARRATIVE: CASE EVENT DATE: 20080101
